FAERS Safety Report 11275922 (Version 1)
Quarter: 2015Q3

REPORT INFORMATION
  Report Type: Spontaneous
  Country: US (occurrence: US)
  Receive Date: 20150716
  Receipt Date: 20150716
  Transmission Date: 20151125
  Serious: No
  Sender: FDA-Public Use
  Company Number: US-BIOGENIDEC-2015BI095598

PATIENT
  Sex: Female

DRUGS (1)
  1. TYSABRI [Suspect]
     Active Substance: NATALIZUMAB
     Indication: MULTIPLE SCLEROSIS
     Route: 042
     Dates: start: 20150511

REACTIONS (6)
  - Muscle disorder [Unknown]
  - Asthenia [Unknown]
  - Aphasia [Unknown]
  - Fatigue [Unknown]
  - Nervousness [Unknown]
  - Drug ineffective [Unknown]
